FAERS Safety Report 16277944 (Version 1)
Quarter: 2019Q2

REPORT INFORMATION
  Report Type: Spontaneous
  Country: FR (occurrence: FR)
  Receive Date: 20190506
  Receipt Date: 20190506
  Transmission Date: 20190711
  Serious: Yes (Hospitalization)
  Sender: FDA-Public Use
  Company Number: FR-OXFORD PHARMACEUTICALS, LLC-2019OXF00070

PATIENT
  Age: 60 Year
  Sex: Male

DRUGS (17)
  1. BACLOFEN. [Suspect]
     Active Substance: BACLOFEN
     Indication: BINGE EATING
     Dosage: 70 MG, 1X/DAY
     Route: 048
     Dates: start: 2016
  2. BACLOFEN. [Suspect]
     Active Substance: BACLOFEN
     Dosage: 180 TO 200 MG, 1X/DAY
     Route: 048
  3. BACLOFEN. [Suspect]
     Active Substance: BACLOFEN
     Dosage: 150 MG/DAY
  4. HYDROXYZINE [Suspect]
     Active Substance: HYDROXYZINE HYDROCHLORIDE
     Route: 065
  5. NEVIRAPINE. [Concomitant]
     Active Substance: NEVIRAPINE
     Route: 065
  6. FLECAINIDE [Concomitant]
     Active Substance: FLECAINIDE
     Route: 065
  7. ABACAVIR-LAMIVUDINE [Concomitant]
     Route: 065
  8. BISOPROLOL [Concomitant]
     Active Substance: BISOPROLOL
     Route: 065
  9. ASPIRIN. [Concomitant]
     Active Substance: ASPIRIN
     Route: 065
  10. MIANSERINE [Suspect]
     Active Substance: MIANSERIN HYDROCHLORIDE
     Route: 065
  11. LERCANIDIPINE [Concomitant]
     Active Substance: LERCANIDIPINE
     Route: 065
  12. CANNABIS [Concomitant]
     Active Substance: CANNABIS SATIVA SUBSP. INDICA TOP
     Route: 065
  13. BACLOFEN. [Suspect]
     Active Substance: BACLOFEN
     Dosage: 60 MG, 5X/DAY
     Route: 048
  14. TELMISARTAN. [Concomitant]
     Active Substance: TELMISARTAN
     Route: 065
  15. SPIRONOLACTONE. [Concomitant]
     Active Substance: SPIRONOLACTONE
     Route: 065
  16. BACLOFEN. [Suspect]
     Active Substance: BACLOFEN
     Dosage: 120 TO 140 MG/DAY
     Route: 048
  17. RILMENIDINE [Concomitant]
     Active Substance: RILMENIDINE
     Route: 065

REACTIONS (1)
  - Psychotic disorder [Recovered/Resolved]
